FAERS Safety Report 13856990 (Version 1)
Quarter: 2017Q3

REPORT INFORMATION
  Report Type: Spontaneous
  Country: US (occurrence: US)
  Receive Date: 20170810
  Receipt Date: 20170810
  Transmission Date: 20171127
  Serious: No
  Sender: FDA-Public Use
  Company Number: US-ROCHE-682047

PATIENT
  Age: 56 Year
  Sex: Male
  Weight: 90.7 kg

DRUGS (3)
  1. TAMIFLU [Suspect]
     Active Substance: OSELTAMIVIR PHOSPHATE
     Indication: INFLUENZA
     Dosage: OTHER INDICATION: NEUROPATHIC PAIN
     Route: 048
  2. TAMIFLU [Suspect]
     Active Substance: OSELTAMIVIR PHOSPHATE
     Route: 048
  3. TAMIFLU [Suspect]
     Active Substance: OSELTAMIVIR PHOSPHATE
     Route: 048

REACTIONS (2)
  - Neuropathy peripheral [Unknown]
  - Neuralgia [Unknown]

NARRATIVE: CASE EVENT DATE: 200911
